FAERS Safety Report 8186297-3 (Version None)
Quarter: 2012Q1

REPORT INFORMATION
  Report Type: 
  Country: None (occurrence: None)
  Receive Date: 20120301
  Receipt Date: 20120223
  Transmission Date: 20120608
  Serious: Yes (Hospitalization, Other)
  Sender: FDA-Public Use
  Company Number: 2012MA002123

PATIENT
  Age: 47 Year
  Sex: Female

DRUGS (8)
  1. FLUPENTIXOL [Concomitant]
  2. OLANZAPINE [Concomitant]
  3. CLOZARIL [Suspect]
     Indication: SCHIZOPHRENIA
     Dosage: 100 MG;PO
     Route: 048
     Dates: start: 20020212
  4. AMISULPRIDE [Concomitant]
  5. FEVERALL [Suspect]
  6. ARIPIPRAZOLE [Concomitant]
  7. QUETIAPINE [Concomitant]
  8. PIPORTIL DEPOT [Concomitant]

REACTIONS (3)
  - OVERDOSE [None]
  - ELECTROCARDIOGRAM ABNORMAL [None]
  - BLOOD PRESSURE INCREASED [None]
